FAERS Safety Report 6076299-5 (Version None)
Quarter: 2009Q1

REPORT INFORMATION
  Report Type: 
  Country: None (occurrence: None)
  Receive Date: 20090209
  Receipt Date: 20080112
  Transmission Date: 20090719
  Serious: Yes (Hospitalization, Other)
  Sender: FDA-Public Use
  Company Number: 2008AP000182

PATIENT
  Age: 64 Year
  Sex: Male
  Weight: 117.4816 kg

DRUGS (9)
  1. CYCLOSPORINE [Suspect]
  2. SIMVASTATIN [Suspect]
     Indication: HYPERLIPIDAEMIA
  3. DILTIAZEM HYDROCHLORIDE [Suspect]
  4. FUROSEMIDE [Suspect]
  5. MYCOPHENOLATE MOFETIL [Suspect]
  6. PREDNISONE [Suspect]
  7. ACETYLSALICYLIC ACID SRT [Suspect]
  8. INSULIN [Suspect]
  9. AZATHIOPRINE [Concomitant]

REACTIONS (9)
  - ABASIA [None]
  - ALANINE AMINOTRANSFERASE INCREASED [None]
  - ASPARTATE AMINOTRANSFERASE INCREASED [None]
  - BLOOD GLUCOSE INCREASED [None]
  - BLOOD PRESSURE SYSTOLIC INCREASED [None]
  - DIARRHOEA [None]
  - HAEMATOCRIT DECREASED [None]
  - RENAL FAILURE ACUTE [None]
  - RHABDOMYOLYSIS [None]
